FAERS Safety Report 8470538-9 (Version None)
Quarter: 2012Q2

REPORT INFORMATION
  Report Type: 
  Country: None (occurrence: None)
  Receive Date: 20120627
  Receipt Date: 20120619
  Transmission Date: 20120825
  Serious: Yes (Hospitalization)
  Sender: FDA-Public Use
  Company Number: IT-SANOFI-AVENTIS-2012SA043924

PATIENT
  Age: 78 Year
  Sex: Female

DRUGS (12)
  1. LANTUS [Suspect]
     Indication: DIABETES MELLITUS
     Route: 058
     Dates: start: 20080101
  2. AMILORIDE HCL AND HYDROCHLOROTHIAZIDE [Concomitant]
     Dosage: STRENGTH: 5MG+50MG
  3. DEURSIL [Concomitant]
  4. LEVOTHYROXINE SODIUM [Concomitant]
  5. HUMALOG [Suspect]
     Indication: DIABETES MELLITUS
     Route: 058
     Dates: start: 20080101
  6. ENOXAPARIN SODIUM [Concomitant]
     Dosage: STRENGTH: 4000 IU
  7. ENALAPRIL MALEATE [Suspect]
     Route: 048
     Dates: start: 20080101, end: 20120527
  8. SIMVASTATIN [Concomitant]
  9. RANITIDINE HCL [Concomitant]
  10. ZOLOFT [Concomitant]
  11. EN [Concomitant]
     Dosage: STRENGTH: 1MG/ML
  12. PLAVIX [Concomitant]
     Dosage: STRENGTH: 75MG

REACTIONS (3)
  - RENAL FAILURE ACUTE [None]
  - HYPOGLYCAEMIA [None]
  - HYPERKALAEMIA [None]
